FAERS Safety Report 8176510-0 (Version None)
Quarter: 2012Q1

REPORT INFORMATION
  Report Type: 
  Country: None (occurrence: None)
  Receive Date: 20120301
  Receipt Date: 20120227
  Transmission Date: 20120608
  Serious: Yes (Other)
  Sender: FDA-Public Use
  Company Number: US-PFIZER INC-2012052242

PATIENT
  Sex: Female
  Weight: 65.76 kg

DRUGS (10)
  1. NEURONTIN [Suspect]
     Indication: FIBROMYALGIA
  2. OMEPRAZOLE [Concomitant]
     Indication: BARRETT'S OESOPHAGUS
     Dosage: 40 MG, UNK
  3. NEURONTIN [Suspect]
     Indication: RHEUMATOID ARTHRITIS
     Dosage: 300 MG, UNK
     Dates: start: 20100101
  4. ULTRAM [Suspect]
     Indication: PAIN
     Dosage: 50 MG, UNK
     Dates: start: 20100101
  5. PREMARIN [Suspect]
     Indication: VULVOVAGINAL DRYNESS
     Dosage: UNK; 3-4 TIMES A WEEK
     Route: 067
     Dates: start: 20100101
  6. TEMAZEPAM [Concomitant]
     Indication: PAIN
     Dosage: 30 MG, UNK
  7. NEURONTIN [Suspect]
     Indication: OSTEOPOROSIS
     Dosage: 600 MG, DAILY
  8. PLAQUENIL [Suspect]
     Indication: PAIN
     Dosage: 200 MG, UNK
     Dates: start: 20120101
  9. PREMARIN [Suspect]
     Indication: VULVOVAGINAL BURNING SENSATION
  10. TRAZODONE [Concomitant]
     Indication: PAIN
     Dosage: 50 MG, UNK

REACTIONS (4)
  - ARTHROPATHY [None]
  - DRUG INEFFECTIVE [None]
  - GAIT DISTURBANCE [None]
  - ACTIVITIES OF DAILY LIVING IMPAIRED [None]
